FAERS Safety Report 18005362 (Version 5)
Quarter: 2021Q1

REPORT INFORMATION
  Report Type: Report from Study
  Country: IE (occurrence: IE)
  Receive Date: 20200709
  Receipt Date: 20210115
  Transmission Date: 20210419
  Serious: Yes (Other)
  Sender: FDA-Public Use
  Company Number: NVSC2020IE192922

PATIENT
  Age: 45 Year
  Sex: Female

DRUGS (4)
  1. KISQALI [Suspect]
     Active Substance: RIBOCICLIB
     Dosage: 400 MG
     Route: 048
     Dates: start: 20200619, end: 20201202
  2. KISQALI [Suspect]
     Active Substance: RIBOCICLIB
     Indication: NEUTROPENIA
     Dosage: 1000 MG
     Route: 048
     Dates: start: 20200619, end: 20200709
  3. KISQALI [Suspect]
     Active Substance: RIBOCICLIB
     Dosage: 600 MG
     Route: 065
  4. KISQALI [Suspect]
     Active Substance: RIBOCICLIB
     Indication: BREAST CANCER METASTATIC
     Dosage: 600 MG, QD (3/52)
     Route: 048
     Dates: start: 20200619

REACTIONS (9)
  - Blood count abnormal [Recovered/Resolved]
  - Monocyte count decreased [Unknown]
  - Nausea [Recovered/Resolved]
  - White blood cell count decreased [Unknown]
  - Blood count abnormal [Recovered/Resolved]
  - Constipation [Recovered/Resolved]
  - Pancytopenia [Not Recovered/Not Resolved]
  - Neutropenia [Recovered/Resolved]
  - Neutrophil count decreased [Unknown]

NARRATIVE: CASE EVENT DATE: 20200601
